FAERS Safety Report 25261847 (Version 2)
Quarter: 2025Q2

REPORT INFORMATION
  Report Type: Spontaneous
  Country: US (occurrence: US)
  Receive Date: 20250502
  Receipt Date: 20250508
  Transmission Date: 20250717
  Serious: Yes (Hospitalization)
  Sender: ULTRAGENYX PHARMACEUTICAL
  Company Number: US-ULTRAGENYX PHARMACEUTICAL INC.-US-UGX-25-00812

PATIENT
  Age: 66 Year
  Sex: Female
  Weight: 97.4 kg

DRUGS (2)
  1. DOJOLVI [Suspect]
     Active Substance: TRIHEPTANOIN
     Indication: Fatty acid oxidation disorder
     Dosage: 20 MILLILITER, TID
     Route: 048
     Dates: start: 20210226
  2. DOJOLVI [Suspect]
     Active Substance: TRIHEPTANOIN
     Indication: Amino acid metabolism disorder
     Route: 048
     Dates: start: 20230113

REACTIONS (5)
  - Norovirus infection [Unknown]
  - Escherichia infection [Unknown]
  - Chronic obstructive pulmonary disease [Unknown]
  - Carnitine palmitoyltransferase deficiency [Unknown]
  - Condition aggravated [Unknown]

NARRATIVE: CASE EVENT DATE: 20250401
